FAERS Safety Report 9966364 (Version 1)
Quarter: 2014Q1

REPORT INFORMATION
  Report Type: Report from Study
  Country: US (occurrence: US)
  Receive Date: 20140305
  Receipt Date: 20140305
  Transmission Date: 20141002
  Serious: No
  Sender: FDA-Public Use
  Company Number: US-ABBVIE-13P-163-1120384-00

PATIENT
  Age: 54 Year
  Sex: Male
  Weight: 100.79 kg

DRUGS (6)
  1. HUMIRA [Suspect]
     Indication: PSORIATIC ARTHROPATHY
     Dates: start: 201303, end: 201307
  2. METHOTREXATE [Concomitant]
     Indication: PSORIATIC ARTHROPATHY
  3. TRAMADOL [Concomitant]
     Indication: PSORIATIC ARTHROPATHY
  4. VICODIN [Concomitant]
     Indication: PAIN
  5. MELOXICAM [Concomitant]
     Indication: PAIN
  6. GABAPENTIN [Concomitant]
     Indication: PSORIATIC ARTHROPATHY

REACTIONS (3)
  - Pain in extremity [Not Recovered/Not Resolved]
  - Burning sensation [Not Recovered/Not Resolved]
  - Arthralgia [Not Recovered/Not Resolved]
